FAERS Safety Report 21530864 (Version 1)
Quarter: 2022Q4

REPORT INFORMATION
  Report Type: Spontaneous
  Country: US (occurrence: None)
  Receive Date: 20221028
  Receipt Date: 20221028
  Transmission Date: 20230113
  Serious: Yes (Life-Threatening, Hospitalization)
  Sender: FDA-Public Use
  Company Number: None

PATIENT
  Age: 76 Year
  Sex: Male
  Weight: 100 kg

DRUGS (2)
  1. ENOXAPARIN [Suspect]
     Active Substance: ENOXAPARIN
     Indication: Product used for unknown indication
     Dosage: FREQUENCY : DAILY;?
     Route: 058
     Dates: start: 20221014, end: 20221017
  2. COUMADIN [Suspect]
     Active Substance: WARFARIN SODIUM

REACTIONS (4)
  - Haematochezia [None]
  - Large intestine polyp [None]
  - Therapy cessation [None]
  - Polypectomy [None]

NARRATIVE: CASE EVENT DATE: 20221013
